FAERS Safety Report 19695639 (Version 2)
Quarter: 2021Q3

REPORT INFORMATION
  Report Type: Report from Study
  Country: US (occurrence: US)
  Receive Date: 20210812
  Receipt Date: 20210815
  Transmission Date: 20211014
  Serious: No
  Sender: FDA-Public Use
  Company Number: NVSC2021US175945

PATIENT
  Age: 36 Year
  Sex: Female

DRUGS (3)
  1. KESIMPTA [Suspect]
     Active Substance: OFATUMUMAB
     Indication: PARANASAL SINUS DISCOMFORT
  2. KESIMPTA [Suspect]
     Active Substance: OFATUMUMAB
     Indication: HEADACHE
     Route: 030
     Dates: start: 20210725
  3. KESIMPTA [Suspect]
     Active Substance: OFATUMUMAB
     Indication: FATIGUE

REACTIONS (3)
  - Fatigue [Recovered/Resolved]
  - Product use in unapproved indication [Recovered/Resolved]
  - Headache [Recovered/Resolved]

NARRATIVE: CASE EVENT DATE: 20210726
